FAERS Safety Report 9686316 (Version 1)
Quarter: 2013Q4

REPORT INFORMATION
  Report Type: Report from Study
  Country: US (occurrence: US)
  Receive Date: 20131113
  Receipt Date: 20131113
  Transmission Date: 20140711
  Serious: Yes (Other)
  Sender: FDA-Public Use
  Company Number: US-JNJFOC-20131102665

PATIENT
  Sex: Female
  Weight: 79.38 kg

DRUGS (5)
  1. REMICADE [Suspect]
     Indication: ARTHRITIS
     Route: 042
     Dates: start: 2013
  2. REMICADE [Suspect]
     Indication: RHEUMATOID ARTHRITIS
     Route: 042
     Dates: start: 2013
  3. REMICADE [Suspect]
     Indication: ANKYLOSING SPONDYLITIS
     Route: 042
     Dates: start: 2013
  4. FLUOXETINE [Concomitant]
     Indication: DEPRESSION
     Route: 048
     Dates: start: 2012
  5. TOPAMAX [Concomitant]
     Indication: MIGRAINE
     Route: 048

REACTIONS (11)
  - Respiratory disorder [Unknown]
  - Pharyngeal oedema [Unknown]
  - Respiratory tract infection [Not Recovered/Not Resolved]
  - Dysphagia [Unknown]
  - Musculoskeletal stiffness [Recovering/Resolving]
  - Inflammation [Unknown]
  - Pharyngeal disorder [Unknown]
  - Malaise [Not Recovered/Not Resolved]
  - Pharyngitis streptococcal [Recovered/Resolved]
  - Oropharyngeal pain [Unknown]
  - Neck pain [Unknown]
